FAERS Safety Report 9833250 (Version 1)
Quarter: 2014Q1

REPORT INFORMATION
  Report Type: Spontaneous
  Country: US (occurrence: US)
  Receive Date: 20140121
  Receipt Date: 20140121
  Transmission Date: 20141002
  Serious: Yes (Death, Hospitalization)
  Sender: FDA-Public Use
  Company Number: US-SPECTRUM PHARMACEUTICALS, INC.-14-F-US-00004

PATIENT
  Age: 60 Year
  Sex: Female

DRUGS (4)
  1. FLUOROURACIL [Suspect]
     Indication: COLON CANCER METASTATIC
     Dosage: 400 MG/M2, SINGLE PUSH
     Route: 042
  2. FLUOROURACIL [Suspect]
     Dosage: 2400MG/M2 INFUSION OVER 46 HOURS
     Route: 042
  3. LEUCOVORIN /00566701/ [Suspect]
     Indication: COLON CANCER METASTATIC
     Dosage: 400 MG/M2, SINGLE
     Route: 042
  4. OXALIPLATIN [Suspect]
     Indication: COLON CANCER METASTATIC
     Dosage: 85 MG/M2, SINGLE
     Route: 042

REACTIONS (11)
  - Mucosal inflammation [Unknown]
  - Oesophagitis [Unknown]
  - Pain [Unknown]
  - Dehydration [Unknown]
  - Pancytopenia [Unknown]
  - Clostridium difficile infection [Unknown]
  - Large intestine perforation [Unknown]
  - Peritonitis [Unknown]
  - Factor VII deficiency [Unknown]
  - Delirium [Unknown]
  - Death [Fatal]
